FAERS Safety Report 20049792 (Version 3)
Quarter: 2021Q4

REPORT INFORMATION
  Report Type: Spontaneous
  Country: AR (occurrence: AR)
  Receive Date: 20211109
  Receipt Date: 20211125
  Transmission Date: 20220303
  Serious: Yes (Other)
  Sender: FDA-Public Use
  Company Number: AR-PFIZER INC-202101511664

PATIENT
  Age: 72 Year
  Sex: Female

DRUGS (3)
  1. XELJANZ [Suspect]
     Active Substance: TOFACITINIB CITRATE
     Indication: Rheumatoid arthritis
     Dosage: UNK
     Dates: start: 2013
  2. COVID-19 VACCINE (SINOPHARM) [Concomitant]
     Indication: COVID-19 immunisation
     Dosage: DOSE 1, SINGLE
     Dates: start: 20210409, end: 20210409
  3. COVID-19 VACCINE (SINOPHARM) [Concomitant]
     Dosage: DOSE 2, SINGLE
     Dates: start: 20210505, end: 20210505

REACTIONS (3)
  - Immunosuppression [Unknown]
  - Vaccine induced antibody absent [Unknown]
  - Coagulopathy [Unknown]
